FAERS Safety Report 18721930 (Version 1)
Quarter: 2021Q1

REPORT INFORMATION
  Report Type: Report from Study
  Country: US (occurrence: US)
  Receive Date: 20210111
  Receipt Date: 20210111
  Transmission Date: 20210419
  Serious: Yes (Death)
  Sender: FDA-Public Use
  Company Number: US-ASTRAZENECA-2021A002495

PATIENT
  Age: 31846 Day
  Sex: Female
  Weight: 52.2 kg

DRUGS (1)
  1. LYNPARZA [Suspect]
     Active Substance: OLAPARIB
     Indication: OVARIAN CANCER
     Dosage: 150 MG, ORALLY, TWO TABLETS TWICE DAILY
     Route: 048
     Dates: start: 202009

REACTIONS (1)
  - Death [Fatal]

NARRATIVE: CASE EVENT DATE: 20201228
